APPROVED DRUG PRODUCT: GRISEOFULVIN, ULTRAMICROSIZE
Active Ingredient: GRISEOFULVIN, ULTRAMICROSIZE
Strength: 250MG
Dosage Form/Route: TABLET;ORAL
Application: A202805 | Product #002 | TE Code: AB
Applicant: SANDOZ INC
Approved: Dec 26, 2018 | RLD: No | RS: No | Type: RX